FAERS Safety Report 4759616-5 (Version None)
Quarter: 2005Q3

REPORT INFORMATION
  Report Type: 
  Country: None (occurrence: None)
  Receive Date: 20050901
  Receipt Date: 20050414
  Transmission Date: 20060218
  Serious: Yes (Hospitalization)
  Sender: FDA-Public Use
  Company Number: US-MERCK-0504USA02841

PATIENT
  Age: 62 Year
  Sex: Male
  Weight: 145 kg

DRUGS (10)
  1. VIOXX [Suspect]
     Indication: BACK PAIN
     Route: 048
     Dates: start: 20020101, end: 20031101
  2. AMARYL [Concomitant]
     Route: 065
  3. ACCUPRIL [Concomitant]
     Route: 065
  4. LASIX [Concomitant]
     Route: 065
  5. COUMADIN [Concomitant]
     Route: 065
     Dates: start: 19950101
  6. PRAVACHOL [Concomitant]
     Route: 065
  7. BEXTRA [Concomitant]
     Route: 065
  8. PLETAL [Concomitant]
     Route: 065
  9. DICLOFENAC SODIUM [Concomitant]
     Route: 065
  10. ASPIRIN [Concomitant]
     Route: 065
     Dates: start: 19950101, end: 20031101

REACTIONS (5)
  - ANKLE FRACTURE [None]
  - FOOT FRACTURE [None]
  - FRACTURE [None]
  - INJURY [None]
  - MYOCARDIAL INFARCTION [None]
